FAERS Safety Report 7811015-5 (Version None)
Quarter: 2011Q4

REPORT INFORMATION
  Report Type: 
  Country: None (occurrence: None)
  Receive Date: 20111013
  Receipt Date: 20111009
  Transmission Date: 20120403
  Serious: No
  Sender: FDA-Public Use
  Company Number: US-TEVA-304683USA

PATIENT
  Sex: Female
  Weight: 54.48 kg

DRUGS (2)
  1. NEXIUM [Concomitant]
     Indication: DYSPEPSIA
     Dosage: 40 MILLIGRAM;
     Route: 048
     Dates: start: 20010101
  2. PLAN B ONE-STEP [Suspect]
     Indication: POST COITAL CONTRACEPTION
     Dosage: 1.5 MILLIGRAM;
     Route: 048
     Dates: start: 20110921, end: 20110921

REACTIONS (6)
  - NIPPLE SWELLING [None]
  - MENSTRUATION IRREGULAR [None]
  - ABDOMINAL PAIN [None]
  - URINARY TRACT INFECTION [None]
  - BREAST TENDERNESS [None]
  - NASOPHARYNGITIS [None]
